FAERS Safety Report 21687846 (Version 1)
Quarter: 2022Q4

REPORT INFORMATION
  Report Type: Spontaneous
  Country: KE (occurrence: KE)
  Receive Date: 20221206
  Receipt Date: 20221206
  Transmission Date: 20230112
  Serious: Yes (Hospitalization, Other)
  Sender: FDA-Public Use
  Company Number: KE-MLMSERVICE-20221117-3923568-1

PATIENT
  Age: 17 Year
  Sex: Female

DRUGS (1)
  1. METHOTREXATE [Suspect]
     Active Substance: METHOTREXATE
     Indication: Takayasu^s arteritis

REACTIONS (10)
  - Mucosal inflammation [Recovered/Resolved]
  - Stomatitis [Recovered/Resolved]
  - Abdominal tenderness [Recovered/Resolved]
  - Tongue ulceration [Recovered/Resolved]
  - Abdominal pain [Recovered/Resolved]
  - Gingival ulceration [Recovered/Resolved]
  - Inappropriate schedule of product administration [Unknown]
  - Mouth ulceration [Recovered/Resolved]
  - Hypophagia [Recovered/Resolved]
  - Odynophagia [Recovered/Resolved]
